FAERS Safety Report 7335191-6 (Version None)
Quarter: 2011Q1

REPORT INFORMATION
  Report Type: 
  Country: None (occurrence: None)
  Receive Date: 20110307
  Receipt Date: 20110301
  Transmission Date: 20110831
  Serious: No
  Sender: FDA-Public Use
  Company Number: US-PFIZER INC-2011016972

PATIENT
  Sex: Female
  Weight: 68 kg

DRUGS (12)
  1. VITAMIN D [Concomitant]
     Dosage: UNK
  2. ACETYLSALICYLIC ACID [Concomitant]
     Dosage: 81 UNK, UNK
  3. PREMARIN [Suspect]
     Indication: OFF LABEL USE
     Dosage: UNK
     Route: 067
     Dates: start: 20110120
  4. PLAVIX [Concomitant]
     Dosage: UNK
  5. CALCIUM [Concomitant]
     Dosage: UNK
  6. PREMARIN [Suspect]
     Indication: KIDNEY INFECTION
     Dosage: UNK
     Route: 067
     Dates: start: 20110120
  7. PREMARIN [Suspect]
     Indication: BLOOD URINE PRESENT
  8. PROZAC [Concomitant]
     Dosage: UNK
  9. PRILOSEC [Concomitant]
     Dosage: UNK
  10. MULTI-VITAMINS [Concomitant]
     Dosage: UNK
  11. ACETYLSALICYLIC ACID [Concomitant]
     Dosage: 81 MG, UNK
  12. ZOCOR [Concomitant]
     Dosage: UNK

REACTIONS (3)
  - VULVOVAGINAL BURNING SENSATION [None]
  - BLOOD URINE PRESENT [None]
  - DISCOMFORT [None]
